FAERS Safety Report 6840790-1 (Version None)
Quarter: 2010Q3

REPORT INFORMATION
  Report Type: 
  Country: None (occurrence: None)
  Receive Date: 20100714
  Receipt Date: 20060809
  Transmission Date: 20110219
  Serious: No
  Sender: FDA-Public Use
  Company Number: US-PFIZER INC-2006098854

PATIENT
  Sex: Female
  Weight: 58.97 kg

DRUGS (2)
  1. CHANTIX [Suspect]
     Indication: SMOKING CESSATION THERAPY
     Route: 048
     Dates: start: 20060801
  2. ZOLOFT [Concomitant]
     Dosage: DAILY
     Route: 048
     Dates: end: 20060730

REACTIONS (2)
  - INSOMNIA [None]
  - RESTLESSNESS [None]
